FAERS Safety Report 7815745-0 (Version None)
Quarter: 2011Q4

REPORT INFORMATION
  Report Type: 
  Country: None (occurrence: None)
  Receive Date: 20111014
  Receipt Date: 20111005
  Transmission Date: 20120403
  Serious: Yes (Hospitalization, Other)
  Sender: FDA-Public Use
  Company Number: DE-ABBOTT-11P-062-0862401-00

PATIENT
  Sex: Male
  Weight: 56 kg

DRUGS (10)
  1. HUMIRA [Suspect]
     Indication: PRODUCT USED FOR UNKNOWN INDICATION
     Dates: start: 20100201, end: 20100401
  2. VANCOMYCIN HCL [Suspect]
     Indication: PRODUCT USED FOR UNKNOWN INDICATION
  3. PREDNISONE [Concomitant]
     Indication: PRODUCT USED FOR UNKNOWN INDICATION
     Dates: start: 20100420
  4. MAGNESIUM VERLA [Concomitant]
     Indication: MAGNESIUM DEFICIENCY
     Dates: start: 20110801
  5. INFLIXIMAB [Concomitant]
     Indication: PRODUCT USED FOR UNKNOWN INDICATION
     Dates: start: 20061101, end: 20100101
  6. AMPHOMORONAL MSP [Concomitant]
     Indication: PRODUCT USED FOR UNKNOWN INDICATION
     Dates: start: 20110801
  7. CYCLOPHOSPHAMIDE [Concomitant]
     Dosage: THRICE 750 MG
     Dates: start: 20100801, end: 20111001
  8. ERGOCALCIFEROL [Concomitant]
     Indication: VITAMIN D DEFICIENCY
     Dates: start: 20110801
  9. FERROUS SULFATE TAB [Concomitant]
     Indication: IRON DEFICIENCY
     Dates: start: 20110801
  10. CYCLOPHOSPHAMIDE [Concomitant]
     Indication: PRODUCT USED FOR UNKNOWN INDICATION
     Dates: start: 20110826

REACTIONS (5)
  - MUCOSAL INFLAMMATION [None]
  - HAEMATOPOIETIC STEM CELL MOBILISATION [None]
  - RENAL FAILURE ACUTE [None]
  - PYREXIA [None]
  - NEUTROPENIA [None]
